FAERS Safety Report 15501259 (Version 2)
Quarter: 2018Q4

REPORT INFORMATION
  Report Type: Spontaneous
  Country: US (occurrence: US)
  Receive Date: 20181015
  Receipt Date: 20181023
  Transmission Date: 20190205
  Serious: Yes (Hospitalization)
  Sender: FDA-Public Use
  Company Number: US-ACTELION-A-NJ2018-178498

PATIENT
  Age: 31 Year
  Sex: Male
  Weight: 174.6 kg

DRUGS (9)
  1. ATORVASTATIN [Concomitant]
     Active Substance: ATORVASTATIN
     Dosage: UNK
     Dates: start: 20180828
  2. CARVEDILOL. [Concomitant]
     Active Substance: CARVEDILOL
     Dosage: UNK
     Dates: start: 20180828
  3. OPSUMIT [Suspect]
     Active Substance: MACITENTAN
     Indication: PULMONARY ARTERIAL HYPERTENSION
     Dosage: 10 MG, QD
     Route: 048
     Dates: start: 20180619, end: 20180828
  4. FUROSEMIDE. [Concomitant]
     Active Substance: FUROSEMIDE
     Dosage: UNK
     Dates: start: 20180828
  5. VITAMIN D [Concomitant]
     Active Substance: CHOLECALCIFEROL
     Dosage: UNK
     Dates: start: 20180828
  6. ADCIRCA [Concomitant]
     Active Substance: TADALAFIL
  7. VANCOMYCIN [Concomitant]
     Active Substance: VANCOMYCIN
     Indication: STAPHYLOCOCCAL INFECTION
     Dosage: UNK
     Dates: start: 20180829, end: 20180830
  8. ASPIRIN. [Concomitant]
     Active Substance: ASPIRIN
     Dosage: UNK
     Dates: start: 20180828
  9. SPIRONOLACTONE. [Concomitant]
     Active Substance: SPIRONOLACTONE
     Dosage: UNK
     Dates: start: 20180828

REACTIONS (14)
  - Cardiac failure congestive [Recovered/Resolved]
  - Oedema [Recovered/Resolved]
  - Sepsis [Recovered/Resolved]
  - Condition aggravated [Unknown]
  - Chest pain [Unknown]
  - Dyspnoea [Recovered/Resolved]
  - Therapy non-responder [Unknown]
  - Troponin I increased [Recovered/Resolved]
  - Dizziness [Unknown]
  - Pyrexia [Recovered/Resolved]
  - Staphylococcal infection [Unknown]
  - Fluid overload [Unknown]
  - Polyuria [Unknown]
  - Chills [Recovered/Resolved]

NARRATIVE: CASE EVENT DATE: 20180827
